FAERS Safety Report 16469640 (Version 1)
Quarter: 2019Q3

REPORT INFORMATION
  Report Type: Spontaneous
  Country: US (occurrence: US)
  Receive Date: 20190623
  Receipt Date: 20190623
  Transmission Date: 20191004
  Serious: Yes (Disabling, Other)
  Sender: FDA-Public Use
  Company Number: None

PATIENT
  Age: 70 Year
  Sex: Male
  Weight: 87.75 kg

DRUGS (3)
  1. RECLAST [Suspect]
     Active Substance: ZOLEDRONIC ACID
     Indication: BONE DISORDER
     Dosage: ?          OTHER FREQUENCY:ONCE A YEAR;OTHER ROUTE:INFUSION??
     Dates: start: 20190417, end: 20190417
  2. PRAVASTATIN. [Concomitant]
     Active Substance: PRAVASTATIN
  3. HCTZ [Concomitant]
     Active Substance: HYDROCHLOROTHIAZIDE

REACTIONS (8)
  - Dizziness [None]
  - Myalgia [None]
  - Asthenia [None]
  - Headache [None]
  - Arthralgia [None]
  - Pyrexia [None]
  - Chills [None]
  - Vertigo [None]

NARRATIVE: CASE EVENT DATE: 20190417
